FAERS Safety Report 8285919-6 (Version None)
Quarter: 2012Q2

REPORT INFORMATION
  Report Type: 
  Country: None (occurrence: None)
  Receive Date: 20120414
  Receipt Date: 20120406
  Transmission Date: 20120825
  Serious: Yes (Other)
  Sender: FDA-Public Use
  Company Number: US-ABBOTT-12P-163-0922394-00

PATIENT
  Sex: Female

DRUGS (1)
  1. DEPAKOTE [Suspect]
     Indication: MATERNAL EXPOSURE TIMING UNSPECIFIED
     Route: 064

REACTIONS (10)
  - EMOTIONAL DISTRESS [None]
  - ACTIVITIES OF DAILY LIVING IMPAIRED [None]
  - DEFORMITY [None]
  - PAIN [None]
  - ANXIETY [None]
  - FOETAL EXPOSURE DURING PREGNANCY [None]
  - INJURY [None]
  - PHYSICAL DISABILITY [None]
  - ANHEDONIA [None]
  - LOSS OF EMPLOYMENT [None]
